FAERS Safety Report 5454692-9 (Version None)
Quarter: 2007Q3

REPORT INFORMATION
  Report Type: 
  Country: None (occurrence: None)
  Receive Date: 20070917
  Receipt Date: 20061009
  Transmission Date: 20080115
  Serious: Yes (Other)
  Sender: FDA-Public Use
  Company Number: US-ASTRAZENECA-2006UW17633

PATIENT
  Age: 16167 Day
  Sex: Female

DRUGS (11)
  1. SEROQUEL [Suspect]
     Indication: BIPOLAR I DISORDER
     Route: 048
     Dates: start: 19990101
  2. SEROQUEL [Suspect]
     Indication: ANXIETY
     Route: 048
     Dates: start: 19990101
  3. SEROQUEL [Suspect]
     Route: 048
     Dates: start: 20050901
  4. SEROQUEL [Suspect]
     Route: 048
     Dates: start: 20050901
  5. SEROQUEL [Suspect]
     Route: 048
  6. SEROQUEL [Suspect]
     Route: 048
  7. SEROQUEL [Suspect]
     Route: 048
     Dates: start: 20060623
  8. SEROQUEL [Suspect]
     Route: 048
     Dates: start: 20060623
  9. PROZAC [Concomitant]
  10. XANAX [Concomitant]
  11. ZYPREXA [Concomitant]
     Dates: start: 19980101

REACTIONS (1)
  - TARDIVE DYSKINESIA [None]
